FAERS Safety Report 19724378 (Version 4)
Quarter: 2022Q3

REPORT INFORMATION
  Report Type: Report from Study
  Country: JP (occurrence: JP)
  Receive Date: 20210819
  Receipt Date: 20220708
  Transmission Date: 20221027
  Serious: Yes (Hospitalization)
  Sender: FDA-Public Use
  Company Number: JP-JNJFOC-20210826087

PATIENT
  Age: 54 Year
  Sex: Female
  Weight: 75 kg

DRUGS (44)
  1. USTEKINUMAB [Suspect]
     Active Substance: USTEKINUMAB
     Indication: Dermatomyositis
     Dates: start: 20210622
  2. TACROLIMUS [Concomitant]
     Active Substance: TACROLIMUS
     Indication: Dermatomyositis
     Route: 048
     Dates: start: 20181011, end: 20210810
  3. TACROLIMUS [Concomitant]
     Active Substance: TACROLIMUS
     Indication: Polymyositis
     Route: 048
     Dates: start: 20210811, end: 20210812
  4. TACROLIMUS [Concomitant]
     Active Substance: TACROLIMUS
     Route: 048
     Dates: start: 20210813, end: 20210813
  5. TACROLIMUS [Concomitant]
     Active Substance: TACROLIMUS
     Route: 048
     Dates: start: 20210814, end: 20210823
  6. TACROLIMUS [Concomitant]
     Active Substance: TACROLIMUS
     Route: 048
     Dates: start: 20210824
  7. PREDONINE [Concomitant]
     Active Substance: PREDNISOLONE
     Indication: Dermatomyositis
     Route: 048
     Dates: start: 20201222
  8. PREDONINE [Concomitant]
     Active Substance: PREDNISOLONE
     Indication: Polymyositis
     Route: 048
     Dates: start: 20210126
  9. PREDONINE [Concomitant]
     Active Substance: PREDNISOLONE
     Route: 048
     Dates: start: 20201222, end: 20210810
  10. PREDONINE [Concomitant]
     Active Substance: PREDNISOLONE
     Route: 048
     Dates: start: 20210813, end: 20210816
  11. PREDONINE [Concomitant]
     Active Substance: PREDNISOLONE
     Route: 048
     Dates: start: 20210817, end: 20210819
  12. PREDONINE [Concomitant]
     Active Substance: PREDNISOLONE
     Route: 048
     Dates: start: 20210820, end: 20210822
  13. PREDONINE [Concomitant]
     Active Substance: PREDNISOLONE
     Route: 048
     Dates: start: 20210823, end: 20210825
  14. PREDONINE [Concomitant]
     Active Substance: PREDNISOLONE
     Route: 048
     Dates: start: 20210826, end: 20210901
  15. PREDONINE [Concomitant]
     Active Substance: PREDNISOLONE
     Route: 048
     Dates: start: 20210902
  16. AMLODIPINE BESYLATE [Concomitant]
     Active Substance: AMLODIPINE BESYLATE
     Indication: Hypertension
     Route: 048
     Dates: start: 20180529
  17. LANSOPRAZOLE [Concomitant]
     Active Substance: LANSOPRAZOLE
     Indication: Gastritis prophylaxis
     Route: 048
     Dates: start: 20180529
  18. TOPRIM [Concomitant]
     Indication: Antifungal prophylaxis
     Route: 048
     Dates: start: 20180615
  19. ELDECALCITOL [Concomitant]
     Active Substance: ELDECALCITOL
     Indication: Osteoporosis prophylaxis
     Route: 048
     Dates: start: 20180618
  20. ALENDRONATE SODIUM [Concomitant]
     Active Substance: ALENDRONATE SODIUM
     Indication: Osteoporosis prophylaxis
     Route: 048
     Dates: start: 20180706
  21. ALENDRONATE SODIUM [Concomitant]
     Active Substance: ALENDRONATE SODIUM
     Route: 048
     Dates: start: 20200709
  22. REPAGLINIDE [Concomitant]
     Active Substance: REPAGLINIDE
     Indication: Diabetes mellitus
     Route: 048
     Dates: start: 20200722
  23. REPAGLINIDE [Concomitant]
     Active Substance: REPAGLINIDE
     Route: 048
     Dates: start: 20200722, end: 20210816
  24. RUPATADINE FUMARATE [Concomitant]
     Active Substance: RUPATADINE FUMARATE
     Indication: Rash
     Dosage: AS NECESARY
     Route: 048
     Dates: start: 20210203
  25. BETAMETHASONE BUTYRATE PROPIONATE [Concomitant]
     Active Substance: BETAMETHASONE BUTYRATE PROPIONATE
     Indication: Rash
     Dosage: AS NECESSARY
     Route: 061
     Dates: start: 20200521
  26. NOVORAPID [Concomitant]
     Active Substance: INSULIN ASPART
     Indication: Diabetes mellitus
     Dosage: 12 UNITS
     Route: 058
     Dates: start: 20210816, end: 20210819
  27. NOVORAPID [Concomitant]
     Active Substance: INSULIN ASPART
     Dosage: 22 UNITS
     Route: 058
     Dates: start: 20210820, end: 20210824
  28. NOVORAPID [Concomitant]
     Active Substance: INSULIN ASPART
     Dosage: 28 UNITS
     Route: 058
     Dates: start: 20210825
  29. NOVORAPID [Concomitant]
     Active Substance: INSULIN ASPART
     Dosage: 8 UNITS
     Route: 058
     Dates: start: 20210820, end: 20210824
  30. NOVORAPID [Concomitant]
     Active Substance: INSULIN ASPART
     Dosage: 10 UNITS
     Route: 058
     Dates: start: 20210825, end: 20210826
  31. NOVORAPID [Concomitant]
     Active Substance: INSULIN ASPART
     Dosage: 12 UNITS
     Route: 058
     Dates: start: 20210827, end: 20210902
  32. NOVORAPID [Concomitant]
     Active Substance: INSULIN ASPART
     Dosage: 14 UNITS
     Route: 058
     Dates: start: 20210903, end: 20211013
  33. NOVORAPID [Concomitant]
     Active Substance: INSULIN ASPART
     Dosage: 14 UNITS
     Route: 058
     Dates: start: 20211014, end: 20211017
  34. NOVORAPID [Concomitant]
     Active Substance: INSULIN ASPART
     Dosage: 20 UNITS
     Route: 058
     Dates: start: 20211118, end: 20211215
  35. NOVORAPID [Concomitant]
     Active Substance: INSULIN ASPART
     Dosage: 22 UNITS
     Route: 058
     Dates: start: 20211216
  36. SOLU-MEDROL [Concomitant]
     Active Substance: METHYLPREDNISOLONE SODIUM SUCCINATE
     Dates: start: 20210810, end: 20210812
  37. SOLU-MEDROL [Concomitant]
     Active Substance: METHYLPREDNISOLONE SODIUM SUCCINATE
     Dates: start: 20220117, end: 20220119
  38. INSULIN GLARGINE [Concomitant]
     Active Substance: INSULIN GLARGINE
     Indication: Diabetes mellitus
     Dosage: 4 UNITS DAILY
     Route: 058
     Dates: start: 20210816, end: 20210819
  39. INSULIN GLARGINE [Concomitant]
     Active Substance: INSULIN GLARGINE
     Dosage: 8 UNITS DAILY
     Route: 058
     Dates: start: 20210820, end: 20210824
  40. INSULIN GLARGINE [Concomitant]
     Active Substance: INSULIN GLARGINE
     Dosage: 10 UNITS DAILY
     Route: 058
     Dates: start: 20210825, end: 20210826
  41. INSULIN GLARGINE [Concomitant]
     Active Substance: INSULIN GLARGINE
     Dosage: 12 UNITS DAILY
     Route: 058
     Dates: start: 20210827, end: 20210902
  42. INSULIN GLARGINE [Concomitant]
     Active Substance: INSULIN GLARGINE
     Dosage: 14 UNITS DAILY
     Route: 058
     Dates: start: 20210903
  43. INSULIN GLARGINE [Concomitant]
     Active Substance: INSULIN GLARGINE
     Dosage: 10 UNITS DAILY
     Route: 058
     Dates: start: 20211014, end: 20211117
  44. INSULIN GLARGINE [Concomitant]
     Active Substance: INSULIN GLARGINE
     Dosage: 12 UNITS
     Route: 058
     Dates: start: 20211118

REACTIONS (1)
  - Respiratory failure [Recovered/Resolved]

NARRATIVE: CASE EVENT DATE: 20210810
